FAERS Safety Report 8507240-0 (Version None)
Quarter: 2012Q3

REPORT INFORMATION
  Report Type: 
  Country: None (occurrence: None)
  Receive Date: 20120712
  Receipt Date: 20120629
  Transmission Date: 20120928
  Serious: Yes (Life-Threatening, Hospitalization)
  Sender: FDA-Public Use
  Company Number: US-009507513-1206USA00706

PATIENT

DRUGS (2)
  1. VORINOSTAT-MYCOSIS FUNGOIDES [Suspect]
     Indication: GLIOBLASTOMA MULTIFORME
     Dosage: 300 MG, Q5W
     Route: 048
     Dates: start: 20120430, end: 20120530
  2. TEMOZOLOMIDE [Suspect]
     Indication: GLIOBLASTOMA MULTIFORME
     Dosage: 75 MG/M2, QD
     Route: 048
     Dates: start: 20120430, end: 20120530

REACTIONS (3)
  - PLATELET COUNT DECREASED [None]
  - NEUTROPHIL COUNT DECREASED [None]
  - WHITE BLOOD CELL COUNT DECREASED [None]
